FAERS Safety Report 8315103-9 (Version None)
Quarter: 2012Q2

REPORT INFORMATION
  Report Type: 
  Country: None (occurrence: None)
  Receive Date: 20120426
  Receipt Date: 20120418
  Transmission Date: 20120825
  Serious: Yes (Other)
  Sender: FDA-Public Use
  Company Number: US-ABBOTT-12P-163-0927093-00

PATIENT
  Sex: Female

DRUGS (2)
  1. NIASPAN [Suspect]
     Dosage: TITRATED TO 3000MG PO QHS
     Route: 048
  2. NIASPAN [Suspect]
     Indication: PRODUCT USED FOR UNKNOWN INDICATION
     Dosage: TITRATED FROM 500 QHS
     Route: 048
     Dates: start: 20080101

REACTIONS (5)
  - BLOOD CHOLESTEROL INCREASED [None]
  - FLUSHING [None]
  - PERIPHERAL ARTERY ANGIOPLASTY [None]
  - COAGULOPATHY [None]
  - BURNING SENSATION [None]
